FAERS Safety Report 12239163 (Version 3)
Quarter: 2016Q2

REPORT INFORMATION
  Report Type: Report from Study
  Country: AT (occurrence: AT)
  Receive Date: 20160405
  Receipt Date: 20160519
  Transmission Date: 20160815
  Serious: Yes (Hospitalization)
  Sender: FDA-Public Use
  Company Number: AT-JNJFOC-20160326890

PATIENT
  Age: 59 Year
  Sex: Male
  Weight: 62 kg

DRUGS (2)
  1. TRABECTEDIN [Suspect]
     Active Substance: TRABECTEDIN
     Indication: MENINGIOMA
     Route: 042
     Dates: start: 20160304
  2. TRABECTEDIN [Suspect]
     Active Substance: TRABECTEDIN
     Route: 042

REACTIONS (6)
  - Aspartate aminotransferase increased [None]
  - Mucosal inflammation [Recovered/Resolved]
  - General physical health deterioration [None]
  - Platelet count increased [None]
  - Alanine aminotransferase increased [None]
  - Blood creatine phosphokinase increased [None]

NARRATIVE: CASE EVENT DATE: 20160324
